FAERS Safety Report 18021480 (Version 1)
Quarter: 2020Q3

REPORT INFORMATION
  Report Type: Spontaneous
  Country: FR (occurrence: FR)
  Receive Date: 20200714
  Receipt Date: 20200714
  Transmission Date: 20201103
  Serious: Yes (Hospitalization)
  Sender: FDA-Public Use
  Company Number: NVSC2020FR195739

PATIENT
  Age: 57 Year
  Sex: Male

DRUGS (2)
  1. COSENTYX [Suspect]
     Active Substance: SECUKINUMAB
     Indication: PSORIASIS
     Dosage: 1 DF, QMO
     Route: 065
     Dates: start: 201907
  2. COSENTYX [Suspect]
     Active Substance: SECUKINUMAB
     Dosage: 1 DF, QMO
     Route: 065
     Dates: start: 202005

REACTIONS (6)
  - Weight decreased [Unknown]
  - Gastrointestinal inflammation [Unknown]
  - Diarrhoea [Unknown]
  - Colitis [Unknown]
  - Gastric mucosal lesion [Unknown]
  - Diarrhoea haemorrhagic [Unknown]
